FAERS Safety Report 7954463-5 (Version None)
Quarter: 2011Q4

REPORT INFORMATION
  Report Type: 
  Country: None (occurrence: None)
  Receive Date: 20111202
  Receipt Date: 20111124
  Transmission Date: 20120403
  Serious: Yes (Hospitalization, Other)
  Sender: FDA-Public Use
  Company Number: FR-BRISTOL-MYERS SQUIBB COMPANY-16180788

PATIENT
  Age: 54 Year
  Sex: Female

DRUGS (7)
  1. ERBITUX [Suspect]
     Indication: PHARYNGEAL CANCER STAGE UNSPECIFIED
     Route: 042
     Dates: start: 20111013, end: 20111013
  2. ACETAMINOPHEN [Suspect]
     Indication: PAIN
     Dosage: SOLUTION FOR INJECTION
     Route: 042
     Dates: start: 20111013, end: 20111013
  3. KETOPROFEN [Suspect]
     Indication: PAIN
     Dosage: STRENGTH-100MG SOLUTION FOR INJECTION
     Route: 042
     Dates: start: 20111013, end: 20111013
  4. VISIPAQUE [Suspect]
     Indication: ABDOMEN SCAN
     Route: 042
     Dates: start: 20111014, end: 20111014
  5. POLARAMINE [Suspect]
     Indication: PREMEDICATION
     Dosage: SOLUTION FOR INJECTION
     Route: 042
     Dates: start: 20111013, end: 20111013
  6. ERBITUX [Suspect]
     Indication: HEAD AND NECK CANCER
     Route: 042
     Dates: start: 20111013, end: 20111013
  7. DEXAMETHASONE [Suspect]
     Indication: PREMEDICATION
     Dosage: SOLUTION FOR INJECTION
     Route: 042
     Dates: start: 20111013, end: 20111013

REACTIONS (2)
  - INFUSION SITE EXTRAVASATION [None]
  - INFUSION SITE PAIN [None]
